FAERS Safety Report 6347752-1 (Version None)
Quarter: 2009Q3

REPORT INFORMATION
  Report Type: 
  Country: None (occurrence: None)
  Receive Date: 20090910
  Receipt Date: 20090908
  Transmission Date: 20100115
  Serious: Yes (Life-Threatening, Hospitalization)
  Sender: FDA-Public Use
  Company Number: A0794868A

PATIENT
  Age: 70 Year
  Sex: Female

DRUGS (13)
  1. AVANDIA [Suspect]
     Indication: DRUG USE FOR UNKNOWN INDICATION
     Dosage: 4MG PER DAY
     Route: 048
  2. INSULIN [Concomitant]
  3. UNKNOWN [Concomitant]
  4. LESCOL XL [Concomitant]
     Dosage: 80MG PER DAY
  5. GEMFIBROZIL [Concomitant]
     Dosage: 1U TWICE PER DAY
  6. METFORMIN HCL [Concomitant]
     Dosage: 1000MG TWICE PER DAY
  7. GLUCOTROL XL [Concomitant]
     Dosage: 10MG PER DAY
  8. LISINOPRIL AND HYDROCHLOROTHIAZIDE [Concomitant]
  9. ASPIRIN [Concomitant]
     Dosage: 81MG PER DAY
  10. ARIMIDEX [Concomitant]
     Dosage: 1MG PER DAY
  11. CALCIUM + VITAMIN D [Concomitant]
     Dosage: 500MG PER DAY
  12. LASIX [Concomitant]
     Dosage: 20MG AS REQUIRED
  13. VITAMIN B-12 [Concomitant]

REACTIONS (3)
  - ENDOMETRIAL CANCER [None]
  - HYSTERECTOMY [None]
  - WEIGHT DECREASED [None]
